FAERS Safety Report 5397967-4 (Version None)
Quarter: 2007Q3

REPORT INFORMATION
  Report Type: 
  Country: None (occurrence: None)
  Receive Date: 20070724
  Receipt Date: 20070716
  Transmission Date: 20080115
  Serious: No
  Sender: FDA-Public Use
  Company Number: 163-21880-07060562

PATIENT
  Sex: Female

DRUGS (12)
  1. REVLIMID [Suspect]
     Indication: MULTIPLE MYELOMA
     Dosage: 25 MG, DAILY X21 DAYS, ORAL
     Route: 048
     Dates: start: 20070301
  2. AMBIEN [Concomitant]
  3. ASPIRIN [Concomitant]
  4. CARAFATE [Concomitant]
  5. DARVOCET [Concomitant]
  6. VERAPAMIL [Concomitant]
  7. PRILOSEC [Concomitant]
  8. LIBRAX [Concomitant]
  9. RELAFEN [Concomitant]
  10. VITSTARIL (HYDROXYZINE EMBONATE) [Concomitant]
  11. TRIAVIL (ETRAFON-D) [Concomitant]
  12. DECADRON [Concomitant]

REACTIONS (1)
  - CATARACT [None]
